FAERS Safety Report 21759537 (Version 4)
Quarter: 2025Q4

REPORT INFORMATION
  Report Type: Report from Study
  Country: GT (occurrence: GT)
  Receive Date: 20221221
  Receipt Date: 20251110
  Transmission Date: 20260117
  Serious: Yes (Disabling, Other)
  Sender: NOVARTIS
  Company Number: GT-002147023-NVSC2022GT292197

PATIENT
  Age: 77 Year
  Sex: Female

DRUGS (4)
  1. EXFORGE [Suspect]
     Active Substance: AMLODIPINE BESYLATE\VALSARTAN
     Indication: Hypertension
     Dosage: 1 DOSAGE FORM, QD (10/160 MG)
     Route: 048
     Dates: start: 2016
  2. EXFORGE [Suspect]
     Active Substance: AMLODIPINE BESYLATE\VALSARTAN
     Dosage: 1 DOSAGE FORM (6 YEARS AGO)
     Route: 065
  3. EXFORGE [Suspect]
     Active Substance: AMLODIPINE BESYLATE\VALSARTAN
     Dosage: 0.5 DOSAGE FORM, BID (160/10 MG  1 HALF IN THE MORNING AND ANOTHER IN THE EVENING)
     Route: 048
  4. ASPIRIN [Concomitant]
     Active Substance: ASPIRIN
     Indication: Ischaemic heart disease prophylaxis
     Dosage: 100 MG (3 YEARS AGO)
     Route: 065

REACTIONS (16)
  - Blood pressure increased [Not Recovered/Not Resolved]
  - Influenza [Recovered/Resolved]
  - Nasal congestion [Unknown]
  - Pain [Not Recovered/Not Resolved]
  - Pyrexia [Not Recovered/Not Resolved]
  - Hypertension [Unknown]
  - Accident [Unknown]
  - Osteoarthritis [Unknown]
  - Influenza [Recovered/Resolved]
  - Hypoacusis [Recovering/Resolving]
  - Dizziness [Recovering/Resolving]
  - Scoliosis [Not Recovered/Not Resolved]
  - Spinal pain [Not Recovered/Not Resolved]
  - Stress [Not Recovered/Not Resolved]
  - Anxiety [Not Recovered/Not Resolved]
  - Arthralgia [Not Recovered/Not Resolved]

NARRATIVE: CASE EVENT DATE: 20220101
